FAERS Safety Report 19677219 (Version 5)
Quarter: 2021Q3

REPORT INFORMATION
  Report Type: Spontaneous
  Country: DE (occurrence: DE)
  Receive Date: 20210809
  Receipt Date: 20210915
  Transmission Date: 20211014
  Serious: Yes (Hospitalization, Other)
  Sender: FDA-Public Use
  Company Number: DE-SAMSUNG BIOEPIS-SB-2021-18982

PATIENT
  Sex: Male

DRUGS (3)
  1. IMRALDI [Suspect]
     Active Substance: ADALIMUMAB
     Indication: PYODERMA GANGRENOSUM
     Dosage: LOADING DOSE
     Route: 058
     Dates: start: 202103
  2. IMRALDI [Suspect]
     Active Substance: ADALIMUMAB
     Route: 058
  3. IMRALDI [Suspect]
     Active Substance: ADALIMUMAB
     Dosage: UNKNOWN
     Route: 058

REACTIONS (7)
  - Product use in unapproved indication [Unknown]
  - Eye infection [Unknown]
  - Haemoglobin decreased [Unknown]
  - Visual impairment [Not Recovered/Not Resolved]
  - Mouth injury [Unknown]
  - Intervertebral disc protrusion [Unknown]
  - Posture abnormal [Unknown]
